FAERS Safety Report 19117417 (Version 1)
Quarter: 2021Q2

REPORT INFORMATION
  Report Type: Spontaneous
  Country: FR (occurrence: FR)
  Receive Date: 20210409
  Receipt Date: 20210409
  Transmission Date: 20210717
  Serious: Yes (Other)
  Sender: FDA-Public Use
  Company Number: FR-TEVA-2021-FR-1897631

PATIENT
  Age: 68 Year
  Sex: Male

DRUGS (15)
  1. CEFAZOLINE MYLAN [Suspect]
     Active Substance: CEFAZOLIN SODIUM
     Indication: SURGERY
     Dosage: 3 G
     Route: 042
     Dates: start: 20210305, end: 20210305
  2. MANNITOL. [Concomitant]
     Active Substance: MANNITOL
     Indication: SURGERY
     Dosage: 300ML
     Route: 042
     Dates: start: 20210305, end: 20210305
  3. EPHEDRINE. [Concomitant]
     Active Substance: EPHEDRINE
     Indication: SURGERY
     Dosage: 12MG
     Route: 042
     Dates: start: 20210305, end: 20210305
  4. ATRACURIUM [Concomitant]
     Active Substance: ATRACURIUM
     Indication: SURGERY
     Dosage: 175MG
     Route: 042
     Dates: start: 20210305, end: 20210305
  5. PREDNISOLONE. [Suspect]
     Active Substance: PREDNISOLONE
     Indication: INFLAMMATION
     Dosage: 2?0?0, 40MG
     Route: 048
     Dates: start: 20210313
  6. ONDANSETRON RENAUDIN [Suspect]
     Active Substance: ONDANSETRON HYDROCHLORIDE
     Indication: SURGERY
     Dosage: 4MG
     Route: 042
     Dates: start: 20210305, end: 20210305
  7. PARACETAMOL [Concomitant]
     Active Substance: ACETAMINOPHEN
     Indication: SURGERY
     Dosage: 1GM
     Route: 042
     Dates: start: 20210305, end: 20210305
  8. AUGMENTIN [Suspect]
     Active Substance: AMOXICILLIN\CLAVULANATE POTASSIUM
     Indication: INFECTION
     Dosage: 3DF
     Route: 042
     Dates: start: 20210308, end: 20210313
  9. TRAMADOL (CHLORHYDRATE DE) [Concomitant]
     Active Substance: TRAMADOL HYDROCHLORIDE
     Indication: SURGERY
     Dosage: 100MG
     Route: 042
     Dates: start: 20210305, end: 20210305
  10. REMIFENTANIL (CHLORHYDRATE DE) [Concomitant]
     Active Substance: REMIFENTANIL HYDROCHLORIDE
     Indication: SURGERY
     Dosage: 3689MCG
     Route: 042
     Dates: start: 20210305, end: 20210305
  11. DEXAMETHASONE. [Concomitant]
     Active Substance: DEXAMETHASONE
     Indication: SURGERY
     Dosage: 8MG
     Route: 042
     Dates: start: 20210305, end: 20210305
  12. LOVENOX [Suspect]
     Active Substance: ENOXAPARIN SODIUM
     Indication: THROMBOSIS PROPHYLAXIS
     Dosage: 4000IU
     Route: 058
     Dates: start: 20210308
  13. PROPOFOL LIPURO [Suspect]
     Active Substance: PROPOFOL
     Indication: SURGERY
     Dosage: 3369MG
     Route: 042
     Dates: start: 20210305, end: 20210305
  14. METHYLPREDNISOLONE. [Suspect]
     Active Substance: METHYLPREDNISOLONE
     Indication: INFLAMMATION
     Dosage: 40MG
     Route: 042
     Dates: start: 20210309, end: 20210312
  15. NORADRENALINE [Concomitant]
     Active Substance: NOREPINEPHRINE
     Indication: SURGERY
     Dosage: 5ML
     Route: 065
     Dates: start: 20210305, end: 20210305

REACTIONS (2)
  - Jaundice [Recovering/Resolving]
  - Mixed liver injury [Recovering/Resolving]

NARRATIVE: CASE EVENT DATE: 20210310
